FAERS Safety Report 7310755-4 (Version None)
Quarter: 2011Q1

REPORT INFORMATION
  Report Type: 
  Country: None (occurrence: None)
  Receive Date: 20110224
  Receipt Date: 20110216
  Transmission Date: 20110831
  Serious: Yes (Death, Other)
  Sender: FDA-Public Use
  Company Number: PHHY2011JP07713

PATIENT
  Sex: Male

DRUGS (1)
  1. VALSARTAN, AMLODIPINE [Suspect]
     Indication: HYPERTENSION
     Dosage: 1 DF, DAILY
     Route: 048
     Dates: start: 20100623

REACTIONS (2)
  - SUDDEN DEATH [None]
  - BLOOD PRESSURE DIASTOLIC DECREASED [None]
